FAERS Safety Report 22174608 (Version 2)
Quarter: 2023Q2

REPORT INFORMATION
  Report Type: Spontaneous
  Country: NZ (occurrence: NZ)
  Receive Date: 20230405
  Receipt Date: 20230630
  Transmission Date: 20230721
  Serious: Yes (Other)
  Sender: FDA-Public Use
  Company Number: NZ-ASPEN-GLO2023NZ002048

PATIENT

DRUGS (5)
  1. NANDROLONE DECANOATE [Interacting]
     Active Substance: NANDROLONE DECANOATE
     Indication: Product used for unknown indication
     Dosage: UNK
     Route: 065
  2. TESTOSTERONE [Suspect]
     Active Substance: TESTOSTERONE
     Indication: Product used for unknown indication
     Dosage: UNK
     Route: 065
  3. DEXTROAMPHETAMINE [Suspect]
     Active Substance: DEXTROAMPHETAMINE
     Indication: Product used for unknown indication
     Dosage: UNK
     Route: 065
  4. FENTANYL [Interacting]
     Active Substance: FENTANYL
     Indication: Product used for unknown indication
     Dosage: UNK
     Route: 065
  5. CONCERTA [Suspect]
     Active Substance: METHYLPHENIDATE HYDROCHLORIDE
     Indication: Spinal pain
     Dosage: UNK
     Route: 065

REACTIONS (4)
  - Product physical consistency issue [Unknown]
  - Intercepted product administration error [Unknown]
  - Drug interaction [Unknown]
  - Adrenal insufficiency [Unknown]
